FAERS Safety Report 23522268 (Version 7)
Quarter: 2025Q3

REPORT INFORMATION
  Report Type: Spontaneous
  Country: US (occurrence: US)
  Receive Date: 20240214
  Receipt Date: 20250801
  Transmission Date: 20251021
  Serious: No
  Sender: ELI LILLY AND COMPANY
  Company Number: US-ELI_LILLY_AND_COMPANY-US202402006930

PATIENT
  Age: 44 Year
  Sex: Female

DRUGS (2)
  1. VERZENIO [Suspect]
     Active Substance: ABEMACICLIB
     Indication: Breast cancer female
     Dosage: 1 DOSAGE FORM, BID
     Route: 048
     Dates: start: 20240214
  2. VERZENIO [Suspect]
     Active Substance: ABEMACICLIB
     Dosage: 1 UNK
     Route: 048

REACTIONS (11)
  - Gastrointestinal disorder [Unknown]
  - Headache [Unknown]
  - Constipation [Unknown]
  - Diarrhoea [Not Recovered/Not Resolved]
  - Fatigue [Not Recovered/Not Resolved]
  - Decreased appetite [Unknown]
  - Neutropenia [Unknown]
  - White blood cell count decreased [Unknown]
  - Nausea [Unknown]
  - Red blood cell count decreased [Unknown]
  - Product dose omission issue [Not Recovered/Not Resolved]
